FAERS Safety Report 23176275 (Version 2)
Quarter: 2023Q4

REPORT INFORMATION
  Report Type: Spontaneous
  Country: GB (occurrence: GB)
  Receive Date: 20231113
  Receipt Date: 20231127
  Transmission Date: 20240109
  Serious: Yes (Hospitalization, Other)
  Sender: FDA-Public Use
  Company Number: GB-TAKEDA-2023TUS107239

PATIENT
  Age: 64 Year
  Sex: Male

DRUGS (2)
  1. LIVTENCITY [Suspect]
     Active Substance: MARIBAVIR
     Indication: Cytomegalovirus infection
     Dosage: UNK
     Route: 065
  2. FOSCARNET [Suspect]
     Active Substance: FOSCARNET
     Indication: Cytomegalovirus infection
     Dosage: UNK
     Route: 065

REACTIONS (5)
  - Cytomegalovirus colitis [Unknown]
  - Cytomegalovirus chorioretinitis [Unknown]
  - Drug ineffective [Unknown]
  - Drug resistance [Unknown]
  - Weight decreased [Unknown]
